FAERS Safety Report 7836807-8 (Version None)
Quarter: 2011Q4

REPORT INFORMATION
  Report Type: 
  Country: None (occurrence: None)
  Receive Date: 20111024
  Receipt Date: 20101202
  Transmission Date: 20120403
  Serious: No
  Sender: FDA-Public Use
  Company Number: US-ABBOTT-10P-163-0689505-00

PATIENT
  Sex: Female
  Weight: 62.652 kg

DRUGS (4)
  1. LUPRON DEPOT [Suspect]
     Indication: ANAEMIA
  2. IRON [Concomitant]
     Indication: PRODUCT USED FOR UNKNOWN INDICATION
  3. LUPRON DEPOT [Suspect]
     Indication: UTERINE LEIOMYOMA
     Dosage: RECEIVED 2 INJECTIONS
     Route: 030
     Dates: start: 20100806, end: 20100910
  4. LUPRON DEPOT [Suspect]
     Indication: MENORRHAGIA

REACTIONS (4)
  - HAEMOGLOBIN DECREASED [None]
  - MUSCLE SPASMS [None]
  - VAGINAL HAEMORRHAGE [None]
  - CYSTITIS [None]
